FAERS Safety Report 11700990 (Version 1)
Quarter: 2015Q4

REPORT INFORMATION
  Report Type: Spontaneous
  Country: US (occurrence: None)
  Receive Date: 20151104
  Receipt Date: 20151104
  Transmission Date: 20160304
  Serious: Yes (Other)
  Sender: FDA-Public Use
  Company Number: None

PATIENT
  Age: 8 Year
  Sex: Male
  Weight: 26.31 kg

DRUGS (1)
  1. LAMOTRIGINE. [Suspect]
     Active Substance: LAMOTRIGINE
     Indication: EMOTIONAL DISORDER
     Dosage: 60 PILLS
     Route: 048
     Dates: start: 20150920, end: 20151028

REACTIONS (5)
  - Mood swings [None]
  - Product substitution issue [None]
  - Aggression [None]
  - Crying [None]
  - Sleep disorder [None]

NARRATIVE: CASE EVENT DATE: 20150920
